FAERS Safety Report 23225434 (Version 1)
Quarter: 2023Q4

REPORT INFORMATION
  Report Type: Spontaneous
  Country: CN (occurrence: CN)
  Receive Date: 20231124
  Receipt Date: 20231124
  Transmission Date: 20240110
  Serious: Yes (Hospitalization)
  Sender: FDA-Public Use
  Company Number: CN-JNJFOC-20231141055

PATIENT
  Age: 52 Year
  Sex: Female
  Weight: 65 kg

DRUGS (4)
  1. VELCADE [Suspect]
     Active Substance: BORTEZOMIB
     Indication: Plasma cell myeloma
     Dosage: 1.87 GRAM, QD
     Route: 058
     Dates: start: 20230906, end: 20230906
  2. VELCADE [Suspect]
     Active Substance: BORTEZOMIB
     Dosage: 1.87 GRAM, QD
     Route: 058
     Dates: start: 20230909, end: 20230909
  3. SODIUM CHLORIDE [Concomitant]
     Active Substance: SODIUM CHLORIDE
     Dosage: 0.8 MILLILITER, QD
     Route: 058
     Dates: start: 20230906, end: 20230906
  4. SODIUM CHLORIDE [Concomitant]
     Active Substance: SODIUM CHLORIDE
     Dosage: 0.8 MILLILITER, QD
     Route: 058
     Dates: start: 20230909, end: 20230909

REACTIONS (2)
  - White blood cell count decreased [Recovering/Resolving]
  - Platelet count decreased [Recovering/Resolving]

NARRATIVE: CASE EVENT DATE: 20230909
